FAERS Safety Report 9503296 (Version 1)
Quarter: 2013Q1

REPORT INFORMATION
  Report Type: Spontaneous
  Country: US (occurrence: None)
  Receive Date: 20130107
  Receipt Date: 20130107
  Transmission Date: 20140127
  Serious: No
  Sender: FDA-Public Use
  Company Number: PHEH2012US017524

PATIENT
  Age: 35 Year
  Sex: Female
  Weight: 50.3 kg

DRUGS (6)
  1. GILENYA [Suspect]
     Dosage: 0.5 MG, QD, ORAL
     Route: 048
     Dates: start: 201206
  2. TOPIRAMATE TOPIRAMATE [Concomitant]
  3. RELPAX ELETRIPTAN HYDROBROMIDE [Concomitant]
  4. CYMBALTA DULOXETINE HYDROCHLORIDE [Concomitant]
  5. FAMPRIDINE FAMPRIDINE [Concomitant]
  6. ACAI [Concomitant]

REACTIONS (16)
  - Memory impairment [None]
  - Hypoaesthesia [None]
  - Vertigo [None]
  - Disturbance in attention [None]
  - Pain in extremity [None]
  - Fatigue [None]
  - Somnolence [None]
  - Myalgia [None]
  - Pain [None]
  - Malaise [None]
  - Decreased appetite [None]
  - Migraine [None]
  - Dizziness [None]
  - Paraesthesia [None]
  - Headache [None]
  - Influenza like illness [None]
